FAERS Safety Report 16054114 (Version 10)
Quarter: 2020Q3

REPORT INFORMATION
  Report Type: Report from Study
  Country: CA (occurrence: CA)
  Receive Date: 20190308
  Receipt Date: 20200910
  Transmission Date: 20201102
  Serious: Yes (Other)
  Sender: FDA-Public Use
  Company Number: CA-ASCEND THERAPEUTICS-2063780

PATIENT
  Age: 60 Year
  Sex: Female

DRUGS (75)
  1. NICOTINAMIDE [Concomitant]
     Active Substance: NIACINAMIDE
  2. COLACE [Suspect]
     Active Substance: DOCUSATE SODIUM
  3. BREO ELLIPTA [Suspect]
     Active Substance: FLUTICASONE FUROATE\VILANTEROL TRIFENATATE
     Route: 045
  4. UMECLIDINIUM BROMIDE (INHALANT) [Suspect]
     Active Substance: UMECLIDINIUM BROMIDE
  5. HYDROCORTISONE ACETATE AND PRAMOXINE HYDROCHLORIDE, ZINC SULFATE [Suspect]
     Active Substance: HYDROCORTISONE ACETATE\PRAMOXINE HYDROCHLORIDE\ZINC SULFATE
  6. ESTROGEL [Suspect]
     Active Substance: ESTRADIOL
  7. PREDNISONE. [Suspect]
     Active Substance: PREDNISONE
  8. ACTONEL [Suspect]
     Active Substance: RISEDRONATE SODIUM
  9. FORADIL [Suspect]
     Active Substance: FORMOTEROL FUMARATE
  10. NYSTATIN. [Suspect]
     Active Substance: NYSTATIN
     Route: 048
  11. OXYNEO (OXYCODONE HYDROCHLORIDE) [Suspect]
     Active Substance: OXYCODONE HYDROCHLORIDE
  12. METAMUCIL THERAPY FOR REGULARITY [Concomitant]
     Active Substance: PSYLLIUM HUSK
  13. CLARITHROMYCIN. [Suspect]
     Active Substance: CLARITHROMYCIN
  14. RIVAROXABAN (RIVAROXABAN) [Suspect]
     Active Substance: RIVAROXABAN
  15. ALBUTEROL (SALBUTAMOL) [Suspect]
     Active Substance: ALBUTEROL
  16. OXYCODONE [Suspect]
     Active Substance: OXYCODONE
  17. PYRIDOXINE HYDROCHLORIDE. [Concomitant]
     Active Substance: PYRIDOXINE HYDROCHLORIDE
  18. BREO ELLIPTA [Suspect]
     Active Substance: FLUTICASONE FUROATE\VILANTEROL TRIFENATATE
  19. PREDNISONE. [Suspect]
     Active Substance: PREDNISONE
  20. BREO ELLIPTA [Suspect]
     Active Substance: FLUTICASONE FUROATE\VILANTEROL TRIFENATATE
     Route: 045
  21. CLARITHROMYCIN. [Suspect]
     Active Substance: CLARITHROMYCIN
  22. BREO ELLIPTA [Suspect]
     Active Substance: FLUTICASONE FUROATE\VILANTEROL TRIFENATATE
     Route: 055
  23. COLACE [Suspect]
     Active Substance: DOCUSATE SODIUM
  24. FLUCONAZOLE. [Suspect]
     Active Substance: FLUCONAZOLE
     Route: 042
  25. HYDROCORTISONE ACETATE AND PRAMOXINE HYDROCHLORIDE [Suspect]
     Active Substance: HYDROCORTISONE ACETATE\PRAMOXINE HYDROCHLORIDE
  26. ESTROGEL [Suspect]
     Active Substance: ESTRADIOL
  27. COLACE [Suspect]
     Active Substance: DOCUSATE SODIUM
  28. FORADIL [Suspect]
     Active Substance: FORMOTEROL FUMARATE
  29. NYSTATIN. [Suspect]
     Active Substance: NYSTATIN
  30. OXYCODONE [Suspect]
     Active Substance: OXYCODONE
  31. OXYCODONE HYDROCHLORIDE. [Suspect]
     Active Substance: OXYCODONE HYDROCHLORIDE
  32. ESTROGEL [Suspect]
     Active Substance: ESTRADIOL
     Indication: PRODUCT USED FOR UNKNOWN INDICATION
  33. PNEUMOCOCCAL VACCINE (PNEUMOCOCCAL VACCINE) UNKNOWN [Concomitant]
     Active Substance: PNEUMOCOCCAL VACCINE POLYVALENT
  34. AIROMIR (SALBUTAMOL SULFATE) UNKNOWN METERED DOSE (AEROSOL) FREQUENCY: [Suspect]
     Active Substance: ALBUTEROL SULFATE
  35. RIVAROXABAN [Suspect]
     Active Substance: RIVAROXABAN
  36. UMECLIDINIUM BROMIDE (INHALANT) [Suspect]
     Active Substance: UMECLIDINIUM BROMIDE
     Route: 045
  37. VENTOLIN [Suspect]
     Active Substance: ALBUTEROL SULFATE
  38. PULMICORT (BUDESONIDE) UNKNOWN [Concomitant]
  39. ALBUTEROL (+) IPRATROPIUM BROMIDE (SALBUTAMOL, IPRATROPIUM) [Suspect]
     Active Substance: ALBUTEROL\IPRATROPIUM BROMIDE
  40. FORMOTEROL (FORMOTEROL FUMARATE) [Suspect]
     Active Substance: FORMOTEROL FUMARATE
  41. FLUTICASONE. [Suspect]
     Active Substance: FLUTICASONE
  42. POLYMOX [Suspect]
     Active Substance: AMOXICILLIN
  43. SINGULAIR [Suspect]
     Active Substance: MONTELUKAST SODIUM
  44. MONTELUKAST [Suspect]
     Active Substance: MONTELUKAST SODIUM
  45. PREDNISONE. [Suspect]
     Active Substance: PREDNISONE
  46. RIVAROXABAN (RIVAROXABAN) [Suspect]
     Active Substance: RIVAROXABAN
  47. INFLUENZA VACCINE (INFUENZA VACCINE) UNKNOWN [Concomitant]
     Active Substance: INFLUENZA VIRUS VACCINE
  48. HYDROCORTISONE, KETOCONAZOLE (CREAM) [Suspect]
     Active Substance: HYDROCORTISONE\KETOCONAZOLE
     Route: 054
  49. AMOXICILLIN. [Suspect]
     Active Substance: AMOXICILLIN
  50. ATOCK (FORMOTEROL FUMURATE) [Suspect]
     Active Substance: FORMOTEROL FUMARATE
  51. VITAMIN B12 [Concomitant]
     Active Substance: CYANOCOBALAMIN
  52. SINGULAIR [Suspect]
     Active Substance: MONTELUKAST SODIUM
  53. NYSTATIN. [Suspect]
     Active Substance: NYSTATIN
     Route: 048
  54. VENTOLIN [Suspect]
     Active Substance: ALBUTEROL SULFATE
  55. FLUCONAZOLE, SODIUM CHLORIDE (SODIUM CHLORIDE, FLUCONAZOLE) [Suspect]
     Active Substance: FLUCONAZOLE
     Route: 042
  56. AMOXICILLIN\CLARITHROMYCIN\PANTOPRAZOLE [Suspect]
     Active Substance: AMOXICILLIN\CLARITHROMYCIN\PANTOPRAZOLE
  57. FORMOTEROL FUMARATE (FORMOTEROL FUMARATE) UNKNOWN [Suspect]
     Active Substance: FORMOTEROL FUMARATE
     Route: 055
  58. XARELTO [Suspect]
     Active Substance: RIVAROXABAN
  59. CALCIUM  D PANTOTHENATE (CALCIUM PANTOTHENATE) UNKNOWN [Concomitant]
     Active Substance: CALCIUM PANTOTHENATE
  60. RIBOFLAVIN (RIBOFLAVIN) UNKNOWN [Concomitant]
     Active Substance: RIBOFLAVIN
  61. THIAMINE HYDROCHLORIDE. [Concomitant]
     Active Substance: THIAMINE HYDROCHLORIDE
  62. MONTELUKAST [Suspect]
     Active Substance: MONTELUKAST SODIUM
  63. FLUCONAZOLE. [Suspect]
     Active Substance: FLUCONAZOLE
     Route: 045
  64. FORMOTEROL FUMARATE (FORMOTEROL FUMARATE) UNKNOWN [Suspect]
     Active Substance: FORMOTEROL FUMARATE
     Route: 055
  65. OXYCODONE HYDROCHLORIDE. [Suspect]
     Active Substance: OXYCODONE HYDROCHLORIDE
  66. FLUTICASONE PROPIONATE. [Suspect]
     Active Substance: FLUTICASONE PROPIONATE
  67. OXYCODONE HYDROCHLORIDE. [Suspect]
     Active Substance: OXYCODONE HYDROCHLORIDE
  68. VITAMINS (VITAMINS NOS) UNKNOWN [Concomitant]
     Active Substance: VITAMINS
  69. PANTOPRAZOLE (PANTOPRAZOLE) [Suspect]
     Active Substance: PANTOPRAZOLE SODIUM
  70. CHOLINE (CHOLINE) UNKNOWN [Concomitant]
     Active Substance: CHOLINE
  71. SINGULAIR [Suspect]
     Active Substance: MONTELUKAST SODIUM
  72. FORMOTEROL [Concomitant]
     Active Substance: FORMOTEROL
  73. XARELTO [Suspect]
     Active Substance: RIVAROXABAN
  74. AMOXICILLIN, CLARITHRONYCIN, ESMOEPRAZOLE MAGNESIUM (AMOXICILLIN TRIHY [Suspect]
     Active Substance: AMOXICILLIN\CLARITHROMYCIN\ESOMEPRAZOLE
  75. PROCTOCREAM HC [Suspect]
     Active Substance: HYDROCORTISONE
     Route: 054

REACTIONS (37)
  - Osteoarthritis [Unknown]
  - Respiratory symptom [Unknown]
  - Deep vein thrombosis [Unknown]
  - Cough [Unknown]
  - Female genital tract fistula [Unknown]
  - Lower respiratory tract infection [Unknown]
  - Salpingo-oophorectomy unilateral [Unknown]
  - Candida infection [Unknown]
  - Disease recurrence [Unknown]
  - Dyspnoea [Unknown]
  - Eczema [Unknown]
  - Gastrooesophageal reflux disease [Unknown]
  - Osteoporosis [Unknown]
  - Wheezing [Unknown]
  - Oedema peripheral [Unknown]
  - Chest discomfort [Unknown]
  - Dyspnoea exertional [Unknown]
  - Fungal infection [Unknown]
  - Hiatus hernia [Unknown]
  - Sinusitis fungal [Unknown]
  - Sinusitis [Unknown]
  - Sleep apnoea syndrome [Unknown]
  - Sputum increased [Unknown]
  - Pulmonary embolism [Unknown]
  - Weight increased [Unknown]
  - Abdominal discomfort [Unknown]
  - Asthma [Unknown]
  - Diastolic dysfunction [Unknown]
  - Emphysema [Unknown]
  - Obstructive airways disorder [Unknown]
  - Tricuspid valve incompetence [Unknown]
  - Embolism venous [Unknown]
  - Hysterectomy [Unknown]
  - Nasal polyps [Unknown]
  - Chronic sinusitis [Unknown]
  - Diverticulum [Unknown]
  - Iron deficiency anaemia [Unknown]
